FAERS Safety Report 8557944-9 (Version None)
Quarter: 2012Q3

REPORT INFORMATION
  Report Type: 
  Country: None (occurrence: None)
  Receive Date: 20120801
  Receipt Date: 20120727
  Transmission Date: 20120928
  Serious: Yes (Hospitalization, Other)
  Sender: FDA-Public Use
  Company Number: PHHY2012MX065657

PATIENT
  Sex: Female

DRUGS (4)
  1. FACTOR GAL [Concomitant]
     Indication: APLASTIC ANAEMIA
     Dates: start: 20100222
  2. DANAZOL [Concomitant]
     Dates: start: 20120501
  3. EXJADE [Suspect]
     Indication: APLASTIC ANAEMIA
     Dates: start: 20120201
  4. NEORAL [Suspect]
     Dosage: 1.3 ML, UNK
     Dates: start: 20120202

REACTIONS (1)
  - GINGIVAL BLEEDING [None]
